FAERS Safety Report 24411852 (Version 1)
Quarter: 2024Q4

REPORT INFORMATION
  Report Type: Spontaneous
  Country: US (occurrence: None)
  Receive Date: 20241007
  Receipt Date: 20241007
  Transmission Date: 20250114
  Serious: Yes (Hospitalization)
  Sender: Public
  Company Number: None

PATIENT
  Sex: Male

DRUGS (5)
  1. SANDIMMUNE [Suspect]
     Active Substance: CYCLOSPORINE
     Indication: Heart transplant
     Dosage: FREQUENCY : TWICE A DAY;?
     Route: 048
     Dates: start: 20210104
  2. METOPROLOL SUCCINATE [Concomitant]
     Active Substance: METOPROLOL SUCCINATE
  3. PANTOPRAZOLE [Concomitant]
  4. PRAVASTATIN [Concomitant]
     Active Substance: PRAVASTATIN
  5. SUCRALFATE SUS [Concomitant]

REACTIONS (1)
  - Fall [None]
